FAERS Safety Report 17245279 (Version 2)
Quarter: 2025Q3

REPORT INFORMATION
  Report Type: Spontaneous
  Country: EU (occurrence: EU)
  Receive Date: 20200108
  Receipt Date: 20250709
  Transmission Date: 20251021
  Serious: Yes (Other)
  Sender: AUROBINDO
  Company Number: EU-MLMSERVICE-20191220-2092517-1

PATIENT
  Sex: Female

DRUGS (4)
  1. CARBOPLATIN [Suspect]
     Active Substance: CARBOPLATIN
     Indication: Ovarian cancer
     Route: 065
  2. PACLITAXEL [Suspect]
     Active Substance: PACLITAXEL
     Indication: Ovarian cancer
     Route: 065
  3. MITOMYCIN [Suspect]
     Active Substance: MITOMYCIN
     Indication: Metastasis
     Route: 033
  4. CISPLATIN [Suspect]
     Active Substance: CISPLATIN
     Indication: Metastasis
     Route: 033

REACTIONS (5)
  - Bronchitis [Recovering/Resolving]
  - Alexander disease [Unknown]
  - Respiratory failure [Recovering/Resolving]
  - Gene mutation [Unknown]
  - Metastases to diaphragm [Unknown]
